FAERS Safety Report 7802499-7 (Version None)
Quarter: 2011Q4

REPORT INFORMATION
  Report Type: 
  Country: None (occurrence: None)
  Receive Date: 20111007
  Receipt Date: 20110930
  Transmission Date: 20120403
  Serious: Yes (Other)
  Sender: FDA-Public Use
  Company Number: JP-GLAXOSMITHKLINE-B0752744A

PATIENT
  Sex: Female

DRUGS (2)
  1. XELODA [Concomitant]
     Dosage: 10IUAX PER DAY
     Route: 048
  2. TYKERB [Suspect]
     Indication: PRODUCT USED FOR UNKNOWN INDICATION
     Dosage: 5IUAX PER DAY
     Route: 048

REACTIONS (4)
  - CELLULITIS [None]
  - SKIN HYPERTROPHY [None]
  - RASH [None]
  - ERYTHEMA [None]
